FAERS Safety Report 8593054 (Version 2)
Quarter: 2012Q4

REPORT INFORMATION
  Report Type: 
  Country: US (occurrence: US)
  Receive Date: 20120604
  Receipt Date: 20121228
  Transmission Date: 20130627
  Serious: No
  Sender: FDA-Public Use
  Company Number: US-BIOGENIDEC-2012BI018891

PATIENT
  Age: 37 None
  Sex: Female

DRUGS (1)
  1. TYSABRI [Suspect]
     Indication: MULTIPLE SCLEROSIS
     Route: 042
     Dates: start: 20120213

REACTIONS (9)
  - Influenza like illness [Recovered/Resolved]
  - Depressed mood [Recovered/Resolved with Sequelae]
  - Memory impairment [Not Recovered/Not Resolved]
  - Visual impairment [Unknown]
  - Catheter site pain [Recovered/Resolved]
  - Motion sickness [Recovered/Resolved]
  - Blood pressure increased [Not Recovered/Not Resolved]
  - Fatigue [Recovered/Resolved]
  - Drug effect decreased [Unknown]
